FAERS Safety Report 15522124 (Version 1)
Quarter: 2018Q4

REPORT INFORMATION
  Report Type: Spontaneous
  Country: US (occurrence: US)
  Receive Date: 20181012
  Receipt Date: 20181012
  Transmission Date: 20190205
  Serious: No
  Sender: FDA-Public Use
  Company Number: None

PATIENT
  Age: 63 Year
  Sex: Male

DRUGS (5)
  1. EYLEA [Suspect]
     Active Substance: AFLIBERCEPT
     Indication: TYPE 2 DIABETES MELLITUS
     Dosage: ?          OTHER ROUTE:INTO BOTH EYES?
     Route: 047
     Dates: start: 20180125
  2. COMBIGAN [Concomitant]
     Active Substance: BRIMONIDINE TARTRATE\TIMOLOL MALEATE
  3. LANTUS [Concomitant]
     Active Substance: INSULIN GLARGINE
  4. EYLEA [Suspect]
     Active Substance: AFLIBERCEPT
     Indication: DIABETIC RETINOPATHY
     Dosage: ?          OTHER ROUTE:INTO BOTH EYES?
     Route: 047
     Dates: start: 20180125
  5. METFORMIN [Concomitant]
     Active Substance: METFORMIN HYDROCHLORIDE

REACTIONS (1)
  - Drug ineffective [None]
